FAERS Safety Report 5523446-7 (Version None)
Quarter: 2007Q4

REPORT INFORMATION
  Report Type: 
  Country: None (occurrence: None)
  Receive Date: 20071121
  Receipt Date: 20071114
  Transmission Date: 20080405
  Serious: Yes (Other)
  Sender: FDA-Public Use
  Company Number: JP-AVENTIS-200712881JP

PATIENT
  Age: 39 Year
  Sex: Male

DRUGS (2)
  1. LANTUS [Suspect]
     Route: 058
     Dates: start: 20050124, end: 20051220
  2. QUICK ACTING INSULIN [Suspect]
     Dosage: FREQUENCY: BEFORE MEALS

REACTIONS (4)
  - HYPOGLYCAEMIC COMA [None]
  - INTENTIONAL OVERDOSE [None]
  - VISUAL ACUITY REDUCED [None]
  - VISUAL FIELD DEFECT [None]
